FAERS Safety Report 10048311 (Version 2)
Quarter: 2014Q2

REPORT INFORMATION
  Report Type: Spontaneous
  Country: US (occurrence: US)
  Receive Date: 20140331
  Receipt Date: 20140507
  Transmission Date: 20141212
  Serious: Yes (Death, Hospitalization)
  Sender: FDA-Public Use
  Company Number: US-GLAXOSMITHKLINE-A1066319A

PATIENT
  Age: 66 Year
  Sex: Male

DRUGS (3)
  1. ADVAIR HFA [Suspect]
     Indication: CHRONIC OBSTRUCTIVE PULMONARY DISEASE
     Dosage: 1PUFF TWICE PER DAY
     Route: 055
     Dates: start: 20131122
  2. VENTOLIN [Suspect]
     Indication: DYSPNOEA
     Route: 055
     Dates: start: 20131122
  3. NONE [Concomitant]

REACTIONS (3)
  - Respiratory failure [Unknown]
  - Death [Fatal]
  - Dyspnoea [Fatal]
